FAERS Safety Report 18976083 (Version 1)
Quarter: 2021Q1

REPORT INFORMATION
  Report Type: Spontaneous
  Country: FR (occurrence: FR)
  Receive Date: 20210305
  Receipt Date: 20210305
  Transmission Date: 20210420
  Serious: Yes (Other)
  Sender: FDA-Public Use
  Company Number: FR-TEVA-2021-FR-1885135

PATIENT
  Age: 71 Year
  Sex: Female
  Weight: 45 kg

DRUGS (15)
  1. WELLVONE 750 MG/5 ML, SUSPENSION BUVABLE EN SACHET?DOSE [Suspect]
     Active Substance: ATOVAQUONE
     Indication: ANTIFUNGAL PROPHYLAXIS
     Dosage: 1500MILLIGRAM
     Route: 048
  2. ALLOPURINOL. [Suspect]
     Active Substance: ALLOPURINOL
     Indication: GOUT
     Dosage: 300MILLIGRAM
     Route: 048
     Dates: start: 20201203
  3. METHYLPREDNISOLONE. [Suspect]
     Active Substance: METHYLPREDNISOLONE
     Indication: B-CELL LYMPHOMA
     Dosage: 40MILLIGRAM
     Route: 037
     Dates: start: 20201216, end: 20201216
  4. CYCLOPHOSPHAMIDE. [Suspect]
     Active Substance: CYCLOPHOSPHAMIDE
     Indication: B-CELL LYMPHOMA
     Dosage: 1070MILLIGRAM
     Route: 042
     Dates: start: 20201211
  5. VALACICLOVIR [Suspect]
     Active Substance: VALACYCLOVIR HYDROCHLORIDE
     Indication: ANTIVIRAL PROPHYLAXIS
     Dosage: 1000MILLIGRAM
     Route: 048
  6. RETACRIT [Suspect]
     Active Substance: EPOETIN ALFA-EPBX
     Indication: ANAEMIA
     Dosage: 1DOSAGEFORM
     Route: 058
     Dates: start: 20201218
  7. LAROXYL 40 MG/ML, SOLUTION BUVABLE [Suspect]
     Active Substance: AMITRIPTYLINE HYDROCHLORIDE
     Indication: OCCIPITAL NEURALGIA
     Dosage: 10GTT
     Route: 048
  8. METHOTREXATE. [Suspect]
     Active Substance: METHOTREXATE
     Indication: B-CELL LYMPHOMA
     Dosage: 15MILLIGRAM
     Route: 037
     Dates: start: 20201216, end: 20201216
  9. VINCRISTINE (SULFATE DE) [Suspect]
     Active Substance: VINCRISTINE SULFATE
     Indication: B-CELL LYMPHOMA
     Dosage: 2MILLIGRAM
     Route: 042
     Dates: start: 20201211
  10. PREDNISOLONE. [Suspect]
     Active Substance: PREDNISOLONE
     Indication: B-CELL LYMPHOMA
     Dosage: 360MILLIGRAM
     Route: 048
     Dates: start: 20201211
  11. DOXORUBICINE [Suspect]
     Active Substance: DOXORUBICIN
     Indication: B-CELL LYMPHOMA
     Dosage: 70MILLIGRAM
     Route: 042
     Dates: start: 20201216
  12. METHOTREXATE. [Suspect]
     Active Substance: METHOTREXATE
     Dosage: 2090MILLIGRAM
     Route: 042
     Dates: start: 20210106
  13. CYTARABINE. [Suspect]
     Active Substance: CYTARABINE
     Indication: B-CELL LYMPHOMA
     Dosage: 30MILLIGRAM
     Route: 037
     Dates: start: 20201216, end: 20201216
  14. ZOPHREN [Suspect]
     Active Substance: ONDANSETRON
     Indication: NAUSEA
     Dosage: 4DOSAGEFORM
     Route: 048
     Dates: start: 20201211
  15. ZARZIO [Suspect]
     Active Substance: FILGRASTIM
     Indication: PRODUCT USED FOR UNKNOWN INDICATION
     Dosage: 5DOSAGEFORM
     Route: 058
     Dates: start: 20201216

REACTIONS (1)
  - Cerebellar stroke [Not Recovered/Not Resolved]

NARRATIVE: CASE EVENT DATE: 20210128
